FAERS Safety Report 6766534-X (Version None)
Quarter: 2010Q2

REPORT INFORMATION
  Report Type: 
  Country: None (occurrence: None)
  Receive Date: 20100611
  Receipt Date: 20100604
  Transmission Date: 20101027
  Serious: Yes (Other)
  Sender: FDA-Public Use
  Company Number: JP-MERCK-1001USA00255

PATIENT
  Age: 65 Year
  Sex: Female

DRUGS (4)
  1. ZETIA [Suspect]
     Indication: HYPERLIPIDAEMIA
     Route: 048
     Dates: start: 20090725, end: 20091211
  2. AMLODIPINE BESYLATE [Concomitant]
     Route: 065
     Dates: start: 20090725
  3. REBAMIPIDE [Concomitant]
     Route: 065
     Dates: start: 20090725
  4. CLOPIDOGREL BISULFATE [Concomitant]
     Route: 065
     Dates: start: 20090725

REACTIONS (3)
  - BLOOD CREATINE PHOSPHOKINASE INCREASED [None]
  - BLOOD LACTATE DEHYDROGENASE INCREASED [None]
  - SENSATION OF HEAVINESS [None]
